FAERS Safety Report 21147090 (Version 1)
Quarter: 2022Q3

REPORT INFORMATION
  Report Type: Spontaneous
  Country: US (occurrence: None)
  Receive Date: 20220728
  Receipt Date: 20220728
  Transmission Date: 20221027
  Serious: No
  Sender: FDA-Public Use
  Company Number: None

PATIENT
  Sex: Male
  Weight: 75.3 kg

DRUGS (10)
  1. GLEOSTINE [Suspect]
     Active Substance: LOMUSTINE
     Indication: Brain neoplasm malignant
     Dosage: 120 MG ONCE@ BED ORAL- ONCE EVERY 6 WKS
     Route: 048
  2. APREPITANT [Suspect]
     Active Substance: APREPITANT
     Indication: Brain neoplasm malignant
     Dosage: 125MG/80MG  DAY1 2 + 3 ORAL-  42 DAY CYCLE?
     Route: 048
  3. DEXAMETHASONE [Concomitant]
     Active Substance: DEXAMETHASONE
  4. FIORINAL [Concomitant]
     Active Substance: ASPIRIN\BUTALBITAL\CAFFEINE
  5. LYRICA [Concomitant]
     Active Substance: PREGABALIN
  6. PROVIGIL [Concomitant]
     Active Substance: MODAFINIL
  7. STIVARGA [Concomitant]
     Active Substance: REGORAFENIB
  8. VIMPAT [Concomitant]
     Active Substance: LACOSAMIDE
  9. ZOFRAN [Concomitant]
     Active Substance: ONDANSETRON HYDROCHLORIDE
  10. ZONEGRAN [Concomitant]
     Active Substance: ZONISAMIDE

REACTIONS (2)
  - Disease progression [None]
  - Platelet count decreased [None]
